FAERS Safety Report 7783338-X (Version None)
Quarter: 2011Q3

REPORT INFORMATION
  Report Type: 
  Country: None (occurrence: None)
  Receive Date: 20110927
  Receipt Date: 20110927
  Transmission Date: 20111222
  Serious: No
  Sender: FDA-Public Use
  Company Number: None

PATIENT
  Age: 94 Year
  Sex: Male
  Weight: 64.5 kg

DRUGS (1)
  1. ATENOLOL [Suspect]
     Dosage: 25 MG EVERY DAY PO
     Route: 048
     Dates: end: 20090710

REACTIONS (1)
  - BRADYCARDIA [None]
